FAERS Safety Report 11169126 (Version 1)
Quarter: 2015Q2

REPORT INFORMATION
  Report Type: Spontaneous
  Country: US (occurrence: US)
  Receive Date: 20150605
  Receipt Date: 20150605
  Transmission Date: 20150821
  Serious: No
  Sender: FDA-Public Use
  Company Number: US-ELI_LILLY_AND_COMPANY-US200910003539

PATIENT
  Sex: Female

DRUGS (7)
  1. SEROQUEL [Suspect]
     Active Substance: QUETIAPINE FUMARATE
     Indication: ANXIETY
  2. STRATTERA [Suspect]
     Active Substance: ATOMOXETINE HYDROCHLORIDE
     Dosage: 25 MG, EACH EVENING
     Route: 065
  3. CLONIDINE. [Concomitant]
     Active Substance: CLONIDINE
  4. ABILIFY [Concomitant]
     Active Substance: ARIPIPRAZOLE
     Dosage: 1 MG, 2/D
  5. STRATTERA [Suspect]
     Active Substance: ATOMOXETINE HYDROCHLORIDE
     Dosage: 35 MG, EACH MORNING
     Route: 065
  6. STRATTERA [Suspect]
     Active Substance: ATOMOXETINE HYDROCHLORIDE
     Indication: ATTENTION DEFICIT/HYPERACTIVITY DISORDER
     Dosage: 1 UNK, UNK
     Route: 065
     Dates: start: 2003
  7. BIOTIN [Concomitant]
     Active Substance: BIOTIN
     Indication: ALOPECIA

REACTIONS (8)
  - Drug effect decreased [Recovered/Resolved]
  - Paranoia [Recovered/Resolved]
  - Anxiety [Recovered/Resolved]
  - Hair texture abnormal [Not Recovered/Not Resolved]
  - Pruritus [Not Recovered/Not Resolved]
  - Feeling hot [Not Recovered/Not Resolved]
  - Trichorrhexis [Not Recovered/Not Resolved]
  - Alopecia [Recovered/Resolved]
